FAERS Safety Report 9641913 (Version 2)
Quarter: 2013Q4

REPORT INFORMATION
  Report Type: Spontaneous
  Country: AT (occurrence: AT)
  Receive Date: 20131023
  Receipt Date: 20131106
  Transmission Date: 20140711
  Serious: Yes (Other)
  Sender: FDA-Public Use
  Company Number: AT-TEVA-437706ISR

PATIENT
  Age: 22 Year
  Sex: Female
  Weight: 82 kg

DRUGS (1)
  1. COPAXONE 20 MG/ML SOLUTION FOR INJECTION IN PRE-FILLED SYRINGE [Suspect]
     Indication: MULTIPLE SCLEROSIS
     Dosage: LAST ADMINISTRATION 25-SEP-2013
     Route: 058
     Dates: start: 201306, end: 20130925

REACTIONS (8)
  - Anaphylactic reaction [Recovered/Resolved]
  - Hypersensitivity [Recovered/Resolved]
  - Abdominal pain upper [Recovered/Resolved]
  - Palpitations [Recovered/Resolved]
  - Chest discomfort [Recovered/Resolved]
  - Ocular hyperaemia [Recovered/Resolved]
  - Oral mucosal erythema [Recovered/Resolved]
  - Injection site pain [Recovered/Resolved]
